FAERS Safety Report 10716832 (Version 1)
Quarter: 2015Q1

REPORT INFORMATION
  Report Type: Spontaneous
  Country: MY (occurrence: MY)
  Receive Date: 20150116
  Receipt Date: 20150116
  Transmission Date: 20150721
  Serious: Yes (Hospitalization)
  Sender: FDA-Public Use
  Company Number: MY-PFIZER INC-2015014371

PATIENT
  Age: 54 Year
  Sex: Female

DRUGS (2)
  1. ERAXIS [Suspect]
     Active Substance: ANIDULAFUNGIN
     Indication: SYSTEMIC CANDIDA
     Dosage: UNK
     Dates: start: 201412
  2. ERAXIS [Suspect]
     Active Substance: ANIDULAFUNGIN
     Indication: RESPIRATORY MONILIASIS

REACTIONS (1)
  - Stevens-Johnson syndrome [Unknown]
